FAERS Safety Report 25064378 (Version 1)
Quarter: 2025Q1

REPORT INFORMATION
  Report Type: Spontaneous
  Country: US (occurrence: US)
  Receive Date: 20250311
  Receipt Date: 20250311
  Transmission Date: 20250409
  Serious: No
  Sender: AMGEN
  Company Number: US-AMGEN-USASP2025044347

PATIENT
  Sex: Female

DRUGS (1)
  1. EVENITY [Suspect]
     Active Substance: ROMOSOZUMAB-AQQG
     Indication: Osteoporosis postmenopausal
     Route: 058
     Dates: start: 202411, end: 202411

REACTIONS (2)
  - Injection site nodule [Unknown]
  - Injection site rash [Unknown]

NARRATIVE: CASE EVENT DATE: 20241101
